FAERS Safety Report 5623268-2 (Version None)
Quarter: 2008Q1

REPORT INFORMATION
  Report Type: 
  Country: None (occurrence: None)
  Receive Date: 20080207
  Receipt Date: 20080201
  Transmission Date: 20080703
  Serious: Yes (Other)
  Sender: FDA-Public Use
  Company Number: 2008SP001293

PATIENT
  Age: 41 Year
  Sex: Female
  Weight: 70.7611 kg

DRUGS (2)
  1. PEG-INTRON [Suspect]
     Indication: HEPATITIS C
     Dosage: 96 MCG;QD;SC
     Route: 058
     Dates: start: 20071104
  2. REBETOL [Suspect]
     Indication: HEPATITIS C
     Dosage: 800 MG;QD;PO
     Dates: start: 20071104

REACTIONS (8)
  - ASTHENIA [None]
  - BENIGN NEOPLASM OF THYROID GLAND [None]
  - BLOOD THYROID STIMULATING HORMONE DECREASED [None]
  - DYSPNOEA [None]
  - HAEMOGLOBIN DECREASED [None]
  - INJECTION SITE BRUISING [None]
  - INJECTION SITE HAEMORRHAGE [None]
  - LETHARGY [None]
